FAERS Safety Report 11175317 (Version 1)
Quarter: 2015Q2

REPORT INFORMATION
  Report Type: Report from Study
  Country: BR (occurrence: BR)
  Receive Date: 20150609
  Receipt Date: 20150609
  Transmission Date: 20150821
  Serious: Yes (Other)
  Sender: FDA-Public Use
  Company Number: PHHY2015BR065622

PATIENT
  Sex: Female
  Weight: 93 kg

DRUGS (3)
  1. IGROTON [Suspect]
     Active Substance: CHLORTHALIDONE
     Indication: HYPERTENSION
     Dosage: UNK
     Route: 065
  2. ASA [Suspect]
     Active Substance: ASPIRIN
     Indication: PRODUCT USED FOR UNKNOWN INDICATION
     Dosage: UNK (15 DAYS)
     Route: 065
     Dates: start: 20150425
  3. DIOVAN [Suspect]
     Active Substance: VALSARTAN
     Indication: HYPERTENSION
     Dosage: 1 DF, QD
     Route: 065

REACTIONS (12)
  - Dengue fever [Recovered/Resolved]
  - Eye pain [Recovered/Resolved]
  - Constipation [Recovered/Resolved]
  - Pyrexia [Recovered/Resolved]
  - Skin discolouration [Recovered/Resolved]
  - Pain [Recovered/Resolved]
  - Ear swelling [Recovered/Resolved]
  - Abdominal pain [Recovered/Resolved]
  - Diarrhoea [Recovered/Resolved]
  - Mass [Recovered/Resolved]
  - Eye pruritus [Unknown]
  - Ocular hyperaemia [Unknown]
